FAERS Safety Report 17192193 (Version 1)
Quarter: 2019Q4

REPORT INFORMATION
  Report Type: Report from Study
  Country: US (occurrence: US)
  Receive Date: 20191223
  Receipt Date: 20191223
  Transmission Date: 20200122
  Serious: Yes (Other)
  Sender: FDA-Public Use
  Company Number: US-ELI_LILLY_AND_COMPANY-US201912008961

PATIENT
  Age: 63 Year
  Sex: Female

DRUGS (6)
  1. INSULIN, HUMAN [Suspect]
     Active Substance: INSULIN HUMAN
     Dosage: UNK, UNKNOWN
     Route: 065
  2. INSULIN, HUMAN [Suspect]
     Active Substance: INSULIN HUMAN
     Dosage: UNK, UNKNOWN
     Route: 065
  3. INSULIN, HUMAN [Suspect]
     Active Substance: INSULIN HUMAN
     Dosage: UNK, UNKNOWN
     Route: 065
     Dates: start: 201905
  4. INSULIN, HUMAN [Suspect]
     Active Substance: INSULIN HUMAN
     Dosage: UNK, UNKNOWN
     Route: 065
  5. INSULIN, HUMAN [Suspect]
     Active Substance: INSULIN HUMAN
     Indication: PRODUCT USED FOR UNKNOWN INDICATION
     Dosage: UNK, UNKNOWN
     Route: 065
     Dates: start: 201505
  6. INSULIN, HUMAN [Suspect]
     Active Substance: INSULIN HUMAN
     Dosage: UNK, UNKNOWN
     Route: 065
     Dates: start: 201910

REACTIONS (9)
  - Neuropathy peripheral [Unknown]
  - Blood glucose abnormal [Unknown]
  - Radiculopathy [Unknown]
  - Product tampering [Unknown]
  - Headache [Unknown]
  - Gait disturbance [Unknown]
  - Cardiomegaly [Unknown]
  - Generalised oedema [Recovered/Resolved]
  - Product dose omission [Unknown]

NARRATIVE: CASE EVENT DATE: 2015
